FAERS Safety Report 7635918-X (Version None)
Quarter: 2011Q3

REPORT INFORMATION
  Report Type: 
  Country: None (occurrence: None)
  Receive Date: 20110719
  Receipt Date: 20110705
  Transmission Date: 20111222
  Serious: Yes (Hospitalization)
  Sender: FDA-Public Use
  Company Number: WAES 1107USA00531

PATIENT
  Age: 55 Year
  Sex: Male
  Weight: 68.9467 kg

DRUGS (9)
  1. ZOFRAN [Concomitant]
  2. CAP VORINOSTAT UNK [Suspect]
     Indication: B-CELL LYMPHOMA
     Dosage: 400 MG/DAILY/PO
     Route: 048
     Dates: start: 20110525, end: 20110607
  3. KLONOPIN [Concomitant]
  4. ETOPOSIDE [Suspect]
     Indication: B-CELL LYMPHOMA
     Dosage: 45 MG/DAILY/PO
     Route: 048
     Dates: start: 20110601, end: 20110603
  5. ETOPOSIDE [Suspect]
     Indication: B-CELL LYMPHOMA
     Dosage: 45 MG/DAILY/PO
     Route: 048
     Dates: start: 20110622, end: 20110624
  6. VICKS NYQUIL (OLD FORMULA) [Concomitant]
  7. NIACINAMIDE [Suspect]
     Indication: B-CELL LYMPHOMA
     Dosage: 5600 MG/DAILY/PO
     Route: 048
     Dates: start: 20110525, end: 20110607
  8. ACIPHEX [Concomitant]
  9. NIACINAMIDE [Suspect]
     Indication: B-CELL LYMPHOMA
     Dosage: 5600 MG/DAILY/ORAL
     Route: 048
     Dates: start: 20110515, end: 20110626

REACTIONS (3)
  - HERPES ZOSTER DISSEMINATED [None]
  - COUGH [None]
  - SUPERINFECTION BACTERIAL [None]
